FAERS Safety Report 21306279 (Version 1)
Quarter: 2022Q3

REPORT INFORMATION
  Report Type: Report from Study
  Country: US (occurrence: US)
  Receive Date: 20220908
  Receipt Date: 20220908
  Transmission Date: 20221026
  Serious: Yes (Hospitalization, Other)
  Sender: FDA-Public Use
  Company Number: US-CELGENE-USA-20211004763

PATIENT
  Age: 68 Year
  Sex: Male
  Weight: 92.99 kg

DRUGS (2)
  1. REVLIMID [Suspect]
     Active Substance: LENALIDOMIDE
     Indication: Plasma cell myeloma
     Dosage: FOR 21 DAYS?ADDITIONAL EXPIRY DATE OF A3763A: 30-SEP-2024
     Route: 048
     Dates: start: 20210302
  2. REVLIMID [Suspect]
     Active Substance: LENALIDOMIDE
     Dosage: 10 MILLIGRAM
     Route: 048
     Dates: start: 202110

REACTIONS (5)
  - Hordeolum [Recovered/Resolved]
  - Device related infection [Unknown]
  - Thrombosis [Unknown]
  - Mass [Unknown]
  - Hypotension [Unknown]

NARRATIVE: CASE EVENT DATE: 20210101
